FAERS Safety Report 9338417 (Version 1)
Quarter: 2013Q2

REPORT INFORMATION
  Report Type: Spontaneous
  Country: US (occurrence: None)
  Receive Date: 20130605
  Receipt Date: 20130605
  Transmission Date: 20140414
  Serious: Yes (Other)
  Sender: FDA-Public Use
  Company Number: None

PATIENT
  Age: 66 Year
  Sex: Male
  Weight: 61.69 kg

DRUGS (10)
  1. METOPROLOL SUCCINATE [Suspect]
     Indication: CAROTID ARTERY OCCLUSION
     Dosage: STRENGTH 100MG  QUANTITY 1 TABLET  ONCE DAILY MOUTH
     Route: 048
     Dates: start: 201301, end: 20130528
  2. VITAMIN D [Concomitant]
  3. SUSTIVA [Concomitant]
  4. LISINOPRIL [Concomitant]
  5. ATORVASTATIN [Concomitant]
  6. OXAZEPAM [Concomitant]
  7. LEVETIRACETAM [Concomitant]
  8. OMEPRAZOLE [Concomitant]
  9. ZENPEP [Concomitant]
  10. GAVISCON [Concomitant]

REACTIONS (4)
  - Tremor [None]
  - Aphasia [None]
  - Heart rate increased [None]
  - Depression [None]
